FAERS Safety Report 9079988 (Version 1)
Quarter: 2013Q1

REPORT INFORMATION
  Report Type: Spontaneous
  Country: US (occurrence: US)
  Receive Date: 20130130
  Receipt Date: 20130130
  Transmission Date: 20140127
  Serious: Yes (Other)
  Sender: FDA-Public Use
  Company Number: US-TEVA-380783USA

PATIENT
  Age: 58 Year
  Sex: Female

DRUGS (1)
  1. LEVETIRACETAM [Suspect]
     Dosage: 1500 MILLIGRAM DAILY;
     Dates: start: 20120801

REACTIONS (3)
  - Drug level decreased [Not Recovered/Not Resolved]
  - Convulsion [Unknown]
  - Haematochezia [Recovered/Resolved]
